FAERS Safety Report 6478610-X (Version None)
Quarter: 2009Q4

REPORT INFORMATION
  Report Type: 
  Country: None (occurrence: None)
  Receive Date: 20091207
  Receipt Date: 20091202
  Transmission Date: 20100525
  Serious: Yes (Other)
  Sender: FDA-Public Use
  Company Number: US-WYE-H10032209

PATIENT
  Sex: Female

DRUGS (4)
  1. PREMPRO [Suspect]
  2. PROVERA [Suspect]
  3. PREMPHASE 14/14 [Suspect]
  4. PREMARIN [Suspect]

REACTIONS (1)
  - BREAST CANCER METASTATIC [None]
